FAERS Safety Report 24042294 (Version 1)
Quarter: 2024Q3

REPORT INFORMATION
  Report Type: Spontaneous
  Country: NO (occurrence: None)
  Receive Date: 20240702
  Receipt Date: 20240702
  Transmission Date: 20241016
  Serious: Yes (Hospitalization)
  Sender: ASTRAZENECA
  Company Number: 2024A151265

PATIENT
  Age: 26 Year
  Sex: Female

DRUGS (13)
  1. SEROQUEL [Suspect]
     Active Substance: QUETIAPINE FUMARATE
     Dosage: 300 MG MORNING AND 400 MG EVENING
     Route: 048
  2. ISOFLURANE [Suspect]
     Active Substance: ISOFLURANE
     Indication: Sedation
     Dosage: END-TIDAL CONCENTRATION IN %: 1.25-1.5 IN THE LAST HOUR BEFORE THE EVENT
     Dates: start: 20240525, end: 20240526
  3. METOCLOPRAMIDE HYDROCHLORIDE [Interacting]
     Active Substance: METOCLOPRAMIDE HYDROCHLORIDE
     Dosage: TID
     Dates: start: 20240525, end: 20240526
  4. CLONIDINE [Interacting]
     Active Substance: CLONIDINE
     Dosage: 30 MCG/ML, 1.3 MCG/KG/HOUR
     Dates: start: 20240524, end: 20240526
  5. ANAFRANIL [Interacting]
     Active Substance: CLOMIPRAMINE HYDROCHLORIDE
     Indication: Anxiety
     Dosage: 100 MG X 2, BID
  6. ERYTHROMYCIN [Interacting]
     Active Substance: ERYTHROMYCIN
     Dosage: 200 MG X 1 (2 DOSES TOTAL)
     Dates: start: 20240524, end: 20240524
  7. BACTRIM [Interacting]
     Active Substance: SULFAMETHOXAZOLE\TRIMETHOPRIM
     Indication: Infection
     Dosage: 800MG/160 MG X 2
     Dates: start: 20240523, end: 20240526
  8. METRONIDAZOLE [Interacting]
     Active Substance: METRONIDAZOLE
     Indication: Infection
     Dates: start: 20240521, end: 20240526
  9. NOREPINEPHRINE\NOREPINEPHRINE BITARTRATE [Concomitant]
     Active Substance: NOREPINEPHRINE\NOREPINEPHRINE BITARTRATE
  10. ENOXAPARIN [Concomitant]
     Active Substance: ENOXAPARIN
     Indication: Prophylaxis
     Dosage: 20 MG X 1
  11. VANCOMYCIN HYDROCHLORIDE [Concomitant]
     Active Substance: VANCOMYCIN HYDROCHLORIDE
     Dosage: 125 MG X 4 IN TUBE
  12. PANTOPRAZOLE SODIUM [Concomitant]
     Active Substance: PANTOPRAZOLE SODIUM
     Dosage: 40 MG I.V. X 2
  13. ACETAMINOPHEN [Concomitant]
     Active Substance: ACETAMINOPHEN

REACTIONS (1)
  - Torsade de pointes [Unknown]

NARRATIVE: CASE EVENT DATE: 20240526
